FAERS Safety Report 9333226 (Version 1)
Quarter: 2013Q2

REPORT INFORMATION
  Report Type: Spontaneous
  Country: GB (occurrence: None)
  Receive Date: 20130604
  Receipt Date: 20130604
  Transmission Date: 20140414
  Serious: Yes (Death, Other)
  Sender: FDA-Public Use
  Company Number: GER/UKI/13/0029780

PATIENT
  Age: 63 Year
  Sex: Female
  Weight: 100 kg

DRUGS (4)
  1. ATORVASTATIN (ATORVASTATIN) [Suspect]
     Indication: HYPERCHOLESTEROLAEMIA
     Route: 048
     Dates: end: 20130420
  2. FUCIDIN [Suspect]
     Indication: OSTEOMYELITIS CHRONIC
     Route: 048
     Dates: start: 20130228, end: 20130420
  3. CEFTRIAXONE (CEFTRIAXONE) [Concomitant]
  4. FLUCLOXACILLIN (FLUCLOXACILLIN) [Concomitant]

REACTIONS (7)
  - Multi-organ failure [None]
  - Intestinal ischaemia [None]
  - Rhabdomyolysis [None]
  - Dermatomyositis [None]
  - Polymyositis [None]
  - Autoimmune disorder [None]
  - Drug interaction [None]
